FAERS Safety Report 16257669 (Version 1)
Quarter: 2019Q2

REPORT INFORMATION
  Report Type: Spontaneous
  Country: ES (occurrence: ES)
  Receive Date: 20190430
  Receipt Date: 20190430
  Transmission Date: 20190711
  Serious: Yes (Other)
  Sender: FDA-Public Use
  Company Number: ES-TEVA-2019-ES-1044946

PATIENT
  Age: 66 Year
  Sex: Male

DRUGS (2)
  1. FENTANILO (1543A) [Suspect]
     Active Substance: FENTANYL
     Dosage: 1 ML / HORA EN LUGAR DE 7 ML/H
     Route: 042
     Dates: start: 20190316, end: 20190316
  2. INSULI - INSULINAS (SIN ESPECIFICAR) [Interacting]
     Active Substance: INSULIN NOS
     Dosage: 7 ML / HORA EN LUGAR DE 1 ML/H
     Route: 042
     Dates: start: 20190316, end: 20190316

REACTIONS (4)
  - Agitation [Unknown]
  - Hypoglycaemia [Unknown]
  - Incorrect drug administration rate [Recovered/Resolved]
  - Drug interaction [Unknown]

NARRATIVE: CASE EVENT DATE: 20190316
